FAERS Safety Report 6699959-1 (Version None)
Quarter: 2010Q2

REPORT INFORMATION
  Report Type: 
  Country: None (occurrence: None)
  Receive Date: 20100428
  Receipt Date: 20100416
  Transmission Date: 20101027
  Serious: Yes (Hospitalization, Other)
  Sender: FDA-Public Use
  Company Number: PHHY2009GB58352

PATIENT
  Sex: Female

DRUGS (3)
  1. CLOZARIL [Suspect]
     Indication: SCHIZOPHRENIA
     Dosage: UNK
     Route: 048
     Dates: start: 20070202
  2. CLOZARIL [Suspect]
     Dosage: 400 MG, QD
  3. CLOZARIL [Suspect]
     Dosage: 300 MG, QD

REACTIONS (9)
  - AUTOIMMUNE THROMBOCYTOPENIA [None]
  - CERVIX CARCINOMA [None]
  - METASTASES TO LYMPH NODES [None]
  - NEUTROPHIL COUNT INCREASED [None]
  - PLATELET COUNT DECREASED [None]
  - SURGERY [None]
  - UTERINE CANCER [None]
  - WEIGHT DECREASED [None]
  - WHITE BLOOD CELL COUNT INCREASED [None]
